FAERS Safety Report 8533867-6 (Version None)
Quarter: 2012Q3

REPORT INFORMATION
  Report Type: 
  Country: None (occurrence: None)
  Receive Date: 20120711
  Receipt Date: 20101220
  Transmission Date: 20120928
  Serious: No
  Sender: FDA-Public Use
  Company Number: A11-001

PATIENT

DRUGS (6)
  1. ALLERGENIC EXTRACT OF VARIOUS WEEDS, GRASSES [Suspect]
     Indication: RHINITIS ALLERGIC
  2. ALLERGENIC EXTRACT OF VARIOUS WEEDS, GRASSES, DUST MITES AND HOUSE DUS [Suspect]
  3. ALLERGENIC EXTRACT OF VARIOUS WEEDS, GRASSES, DUST MITES AND HOUSE DUS [Suspect]
  4. ALLERGENIC EXTRACT OF VARIOUS WEEDS, GRASSES, DUST MITES AND HOUSE DUS [Suspect]
  5. ALLERGENIC EXTRACT OF VARIOUS WEEDS, GRASSES, DUST MITES AND HOUSE DUS [Suspect]
  6. ALLERGENIC EXTRACT OF VARIOUS WEEDS, GRASSES, DUST MITES AND HOUSE DUS [Suspect]

REACTIONS (1)
  - INJECTION SITE REACTION [None]
